FAERS Safety Report 12634255 (Version 1)
Quarter: 2016Q3

REPORT INFORMATION
  Report Type: Spontaneous
  Country: US (occurrence: US)
  Receive Date: 20160809
  Receipt Date: 20160809
  Transmission Date: 20161109
  Serious: No
  Sender: FDA-Public Use
  Company Number: US-BAUSCH-BL-2015-027513

PATIENT
  Sex: Male

DRUGS (1)
  1. ALBUTEROL SULFATE INHALATION SOLUTION 0.5% [Suspect]
     Active Substance: ALBUTEROL SULFATE
     Indication: SINUSITIS
     Route: 065

REACTIONS (6)
  - Diarrhoea [Unknown]
  - Dry mouth [Unknown]
  - Pollakiuria [Unknown]
  - Constipation [Unknown]
  - Gastrooesophageal reflux disease [Unknown]
  - Abdominal distension [Unknown]
